FAERS Safety Report 9783424 (Version 1)
Quarter: 2013Q4

REPORT INFORMATION
  Report Type: Spontaneous
  Country: US (occurrence: None)
  Receive Date: 20131223
  Receipt Date: 20131223
  Transmission Date: 20140711
  Serious: Yes (Hospitalization)
  Sender: FDA-Public Use
  Company Number: 2013US0512

PATIENT
  Age: 42 Year
  Sex: Female

DRUGS (1)
  1. KEPIVANCE [Suspect]
     Indication: NEOPLASM MALIGNANT
     Dosage: INTRAVENOUS
     Route: 042
     Dates: start: 2013

REACTIONS (3)
  - Unevaluable event [None]
  - Muscular weakness [None]
  - General physical health deterioration [None]
